FAERS Safety Report 7499690-9 (Version None)
Quarter: 2011Q2

REPORT INFORMATION
  Report Type: 
  Country: None (occurrence: None)
  Receive Date: 20110524
  Receipt Date: 20110520
  Transmission Date: 20111010
  Serious: Yes (Other)
  Sender: FDA-Public Use
  Company Number: SK-PFIZER INC-2011108704

PATIENT
  Age: 55 Year
  Sex: Male

DRUGS (2)
  1. SUNITINIB MALATE [Suspect]
     Indication: RENAL CANCER
     Dosage: 50 MG, 1X/DAY, 4 WEEKS ON THERAPY, 2 WEEKS PAUSE
     Dates: start: 20090513, end: 20100401
  2. SUNITINIB MALATE [Suspect]
     Dosage: 50 MG, ALTERNATE DAY,  4 WEEKS ON THERAPY, 2 WEEKS PAUSE
     Dates: start: 20100401

REACTIONS (1)
  - BONE MARROW FAILURE [None]
